FAERS Safety Report 13305516 (Version 1)
Quarter: 2017Q1

REPORT INFORMATION
  Report Type: Other
  Country: GB (occurrence: GB)
  Receive Date: 20170308
  Receipt Date: 20170308
  Transmission Date: 20170428
  Serious: Yes (Life-Threatening)
  Sender: FDA-Public Use
  Company Number: GB-LUPIN PHARMACEUTICALS INC.-E2B_00007480

PATIENT
  Sex: Female

DRUGS (1)
  1. SERTRALINE [Suspect]
     Active Substance: SERTRALINE HYDROCHLORIDE
     Indication: DEPRESSION
     Dosage: UNK UNK,UNK,UNKNOWN
     Route: 065
     Dates: start: 2016

REACTIONS (4)
  - Abnormal behaviour [Unknown]
  - Malaise [Unknown]
  - Intentional overdose [Unknown]
  - Suicide attempt [Unknown]
